FAERS Safety Report 6827050-X (Version None)
Quarter: 2010Q3

REPORT INFORMATION
  Report Type: 
  Country: None (occurrence: None)
  Receive Date: 20100709
  Receipt Date: 20100706
  Transmission Date: 20110219
  Serious: Yes (Hospitalization)
  Sender: FDA-Public Use
  Company Number: CA-MERCK-1007USA00478

PATIENT
  Age: 44 Year
  Sex: Male

DRUGS (10)
  1. ISENTRESS [Suspect]
     Route: 048
  2. BUPROPION HYDROCHLORIDE [Suspect]
     Route: 065
  3. CITALOPRAM [Suspect]
     Route: 065
  4. CLONAZEPAM [Suspect]
     Route: 065
  5. EMTRIVA [Suspect]
     Route: 065
  6. QUETIAPINE FUMARATE [Suspect]
     Route: 065
  7. REYATAZ [Suspect]
     Route: 065
  8. RISPERIDONE [Suspect]
     Route: 065
  9. RITONAVIR [Suspect]
     Route: 065
  10. TENOFOVIR [Suspect]
     Route: 065

REACTIONS (8)
  - ANXIETY [None]
  - DEPRESSION [None]
  - DRUG INTERACTION [None]
  - PARANOIA [None]
  - PSYCHIATRIC DECOMPENSATION [None]
  - PSYCHOMOTOR SKILLS IMPAIRED [None]
  - SUICIDAL IDEATION [None]
  - TEARFULNESS [None]
